FAERS Safety Report 5942464-8 (Version None)
Quarter: 2008Q4

REPORT INFORMATION
  Report Type: 
  Country: None (occurrence: None)
  Receive Date: 20081105
  Receipt Date: 20081024
  Transmission Date: 20090506
  Serious: Yes (Hospitalization)
  Sender: FDA-Public Use
  Company Number: JP-AMGEN-US305360

PATIENT
  Sex: Female
  Weight: 43 kg

DRUGS (17)
  1. ENBREL [Suspect]
     Indication: RHEUMATOID ARTHRITIS
     Dosage: 25 MG TWICE WEEKLY; LYOPHILIZED
     Route: 058
     Dates: start: 20080417, end: 20080814
  2. METHOTREXATE [Suspect]
     Indication: RHEUMATOID ARTHRITIS
     Route: 048
     Dates: start: 19980501, end: 20080818
  3. METHOTREXATE [Suspect]
     Route: 048
     Dates: start: 19981001, end: 19990701
  4. METHOTREXATE [Suspect]
     Route: 048
     Dates: start: 19990701, end: 20000501
  5. METHOTREXATE [Suspect]
     Route: 048
     Dates: start: 20000501, end: 20070501
  6. METHOTREXATE [Suspect]
     Route: 048
     Dates: start: 20070501, end: 20080818
  7. RIMATIL [Concomitant]
     Indication: RHEUMATOID ARTHRITIS
     Dosage: 100MG; UNSPECIFIED FREQUENCY
     Route: 048
     Dates: start: 19940401, end: 20080818
  8. RIMATIL [Concomitant]
     Route: 048
     Dates: start: 19980401, end: 20080818
  9. FOLIAMIN [Concomitant]
     Indication: PROPHYLAXIS
     Route: 048
     Dates: start: 19980501
  10. ISCOTIN [Concomitant]
     Indication: PULMONARY TUBERCULOSIS
     Route: 048
     Dates: start: 20060801
  11. CELECOXIB [Concomitant]
     Indication: RHEUMATOID ARTHRITIS
     Route: 048
     Dates: start: 20080611
  12. PREDNISOLONE [Concomitant]
     Indication: RHEUMATOID ARTHRITIS
     Dosage: 5MG; UNSPECIFIED FREQUENCY
     Route: 048
     Dates: start: 19980401, end: 20070501
  13. PREDNISOLONE [Concomitant]
     Route: 048
     Dates: start: 19980401, end: 20000201
  14. PREDNISOLONE [Concomitant]
     Dosage: 5 MG; UNSPECIFIED FREQUENCY
     Route: 048
     Dates: start: 20000201, end: 20000501
  15. PREDNISOLONE [Concomitant]
     Dosage: 10MG; UNSPECIFIED FREQUENCY
     Route: 048
     Dates: start: 20000501, end: 20070501
  16. PREDNISOLONE [Concomitant]
     Dosage: 5 MG;  UNSPEICIFED FREQUENCY
     Route: 048
     Dates: start: 20070501
  17. VOLTAREN-XR [Concomitant]
     Indication: RHEUMATOID ARTHRITIS
     Route: 048
     Dates: end: 20080610

REACTIONS (3)
  - ASPERGILLOSIS [None]
  - MYCOBACTERIUM AVIUM COMPLEX INFECTION [None]
  - PNEUMOCYSTIS JIROVECI PNEUMONIA [None]
